FAERS Safety Report 9906730 (Version 3)
Quarter: 2014Q2

REPORT INFORMATION
  Report Type: Report from Study
  Country: US (occurrence: US)
  Receive Date: 20140218
  Receipt Date: 20140512
  Transmission Date: 20141212
  Serious: Yes (Other)
  Sender: FDA-Public Use
  Company Number: US-ABBVIE-09P-163-0496252-00

PATIENT
  Age: 55 Year
  Sex: Male
  Weight: 111.68 kg

DRUGS (13)
  1. HUMIRA [Suspect]
     Indication: PSORIASIS
     Dates: start: 2008, end: 2013
  2. HUMIRA [Suspect]
     Indication: PSORIATIC ARTHROPATHY
     Dosage: INITIAL DOSE
     Dates: start: 201401, end: 201401
  3. HUMIRA [Suspect]
     Dosage: ONE WEEK AFTER FIRST DOSE
     Dates: start: 201401, end: 201403
  4. HUMIRA [Suspect]
     Dates: start: 201403
  5. LEVOTHYROXINE [Concomitant]
     Indication: HYPOTHYROIDISM
  6. LISINOPRIL [Concomitant]
     Indication: HYPERTENSION
  7. FLOMAX [Concomitant]
     Indication: BENIGN PROSTATIC HYPERPLASIA
  8. BABY ASPIRIN [Concomitant]
     Indication: THROMBOSIS PROPHYLAXIS
  9. BABY ASPIRIN [Concomitant]
     Indication: THROMBOSIS PROPHYLAXIS
  10. XANAX [Concomitant]
     Indication: PANIC DISORDER
     Dosage: INFEREQUENTLY, AS NEEDED
  11. ZOCAR [Concomitant]
     Indication: BLOOD CHOLESTEROL INCREASED
  12. ZOCAR [Concomitant]
     Indication: HYPERLIPIDAEMIA
  13. SYNTHROID [Concomitant]
     Indication: HYPOTHYROIDISM

REACTIONS (8)
  - Macular degeneration [Not Recovered/Not Resolved]
  - Alopecia [Not Recovered/Not Resolved]
  - Drug ineffective [Not Recovered/Not Resolved]
  - Psoriasis [Not Recovered/Not Resolved]
  - Pruritus [Not Recovered/Not Resolved]
  - Burning sensation [Not Recovered/Not Resolved]
  - Pain [Recovered/Resolved]
  - Arterial occlusive disease [Recovered/Resolved]
